FAERS Safety Report 18704731 (Version 1)
Quarter: 2021Q1

REPORT INFORMATION
  Report Type: Spontaneous
  Country: US (occurrence: US)
  Receive Date: 20210106
  Receipt Date: 20210106
  Transmission Date: 20210419
  Serious: Yes (Hospitalization, Other)
  Sender: FDA-Public Use
  Company Number: US-APOTEX-2020AP025188

PATIENT
  Age: 38 Year
  Sex: Female

DRUGS (1)
  1. CLONIDINE. [Suspect]
     Active Substance: CLONIDINE
     Indication: DRUG DEPENDENCE
     Dosage: UNK
     Route: 065

REACTIONS (13)
  - Somnolence [Recovering/Resolving]
  - Overdose [Unknown]
  - Therapeutic product effect incomplete [Unknown]
  - Mental status changes [Recovering/Resolving]
  - Miosis [Recovering/Resolving]
  - Hypotension [Recovering/Resolving]
  - Atrioventricular block first degree [Unknown]
  - Toxicity to various agents [Unknown]
  - Confusional state [Unknown]
  - Hypothermia [Recovering/Resolving]
  - Off label use [Unknown]
  - Bradycardia [Recovering/Resolving]
  - Hypertension [Recovering/Resolving]
